FAERS Safety Report 11231298 (Version 1)
Quarter: 2015Q2

REPORT INFORMATION
  Report Type: Spontaneous
  Country: US (occurrence: None)
  Receive Date: 20150616
  Receipt Date: 20150616
  Transmission Date: 20150821
  Serious: Yes (Hospitalization)
  Sender: FDA-Public Use
  Company Number: USW201308-000092

PATIENT
  Age: 78 Year
  Sex: Male
  Weight: 100 kg

DRUGS (17)
  1. VOLTRAN GEL (DICLOFENAC SODIUM) [Concomitant]
  2. CLONAZEPAM. [Concomitant]
     Active Substance: CLONAZEPAM
  3. ISOSORBIDE [Concomitant]
     Active Substance: ISOSORBIDE
  4. PROPAFENONE. [Concomitant]
     Active Substance: PROPAFENONE
  5. VERAPAMIL [Concomitant]
     Active Substance: VERAPAMIL HYDROCHLORIDE
  6. POTASSIUM [Concomitant]
     Active Substance: POTASSIUM
  7. FINASTERIDE. [Concomitant]
     Active Substance: FINASTERIDE
  8. APOKYN [Suspect]
     Active Substance: APOMORPHINE HYDROCHLORIDE
     Indication: PARKINSON^S DISEASE
     Dosage: SITE: ABDOMEN
     Dates: start: 20130806
  9. SINEMET (CARBIDOPA, LEVODOPA) (CARBIDOPA, LEVODOPA) [Concomitant]
  10. COZAR (LOSARTAN) [Concomitant]
  11. FENTANYL TRANSDERMAL SYSTEM [Concomitant]
     Active Substance: FENTANYL
  12. TIGAN (TRIMETHOBENZAMIDE) [Concomitant]
  13. XARELTO [Concomitant]
     Active Substance: RIVAROXABAN
  14. ATENOLOL. [Concomitant]
     Active Substance: ATENOLOL
  15. VENLAFAXINE [Concomitant]
     Active Substance: VENLAFAXINE HYDROCHLORIDE
  16. SIMVASTATIN. [Concomitant]
     Active Substance: SIMVASTATIN
  17. FUROSEMIDE. [Concomitant]
     Active Substance: FUROSEMIDE

REACTIONS (4)
  - Fall [None]
  - Blood pressure orthostatic decreased [None]
  - Yawning [None]
  - Somnolence [None]

NARRATIVE: CASE EVENT DATE: 20130806
